FAERS Safety Report 14133916 (Version 3)
Quarter: 2018Q1

REPORT INFORMATION
  Report Type: Spontaneous
  Country: DE (occurrence: DE)
  Receive Date: 20171026
  Receipt Date: 20180223
  Transmission Date: 20180508
  Serious: Yes (Other)
  Sender: FDA-Public Use
  Company Number: DE-009507513-1710DEU004093

PATIENT
  Age: 19 Year
  Sex: Female

DRUGS (1)
  1. NUVARING [Suspect]
     Active Substance: ETHINYL ESTRADIOL\ETONOGESTREL
     Indication: CONTRACEPTION
     Dosage: RING
     Route: 067
     Dates: start: 20170701

REACTIONS (5)
  - Adverse event [Unknown]
  - Inappropriate schedule of drug administration [Unknown]
  - Product use issue [Unknown]
  - Chlamydial infection [Unknown]
  - Intentional medical device removal by patient [Unknown]

NARRATIVE: CASE EVENT DATE: 2017
